FAERS Safety Report 4920809-5 (Version None)
Quarter: 2006Q1

REPORT INFORMATION
  Report Type: 
  Country: None (occurrence: None)
  Receive Date: 20060113
  Receipt Date: 20050919
  Transmission Date: 20060701
  Serious: No
  Sender: FDA-Public Use
  Company Number: 2005SP002967

PATIENT
  Age: 46 Year
  Sex: Male
  Weight: 136.0791 kg

DRUGS (9)
  1. LUNESTA [Suspect]
     Indication: INSOMNIA
     Dosage: 3 MG;HS;ORAL
     Route: 048
     Dates: start: 20050912, end: 20050912
  2. ZANTAC [Concomitant]
  3. MS CONTIN [Concomitant]
  4. NEURONTIN [Concomitant]
  5. DARVOCET [Concomitant]
  6. METFORMIN [Concomitant]
  7. ADVICOR [Concomitant]
  8. STOOL SOFTENER [Concomitant]
  9. LAXATIVES [Concomitant]

REACTIONS (1)
  - DYSGEUSIA [None]
